FAERS Safety Report 24178411 (Version 1)
Quarter: 2024Q3

REPORT INFORMATION
  Report Type: Spontaneous
  Country: US (occurrence: None)
  Receive Date: 20240805
  Receipt Date: 20240805
  Transmission Date: 20241016
  Serious: No
  Sender: Public
  Company Number: None

PATIENT

DRUGS (3)
  1. NORETHINDRONE [Suspect]
     Active Substance: NORETHINDRONE
  2. HYDROXYZINE PAMOATE [Suspect]
     Active Substance: HYDROXYZINE PAMOATE
  3. NORVASC [Suspect]
     Active Substance: AMLODIPINE BESYLATE

REACTIONS (1)
  - Wrong patient received product [None]
